FAERS Safety Report 12369952 (Version 1)
Quarter: 2016Q2

REPORT INFORMATION
  Report Type: Spontaneous
  Country: US (occurrence: None)
  Receive Date: 20160513
  Receipt Date: 20160513
  Transmission Date: 20160815
  Serious: No
  Sender: FDA-Public Use
  Company Number: None

PATIENT
  Age: 82 Year
  Sex: Female
  Weight: 72.58 kg

DRUGS (15)
  1. LASIX [Concomitant]
     Active Substance: FUROSEMIDE
  2. TUDORZA PRESSAIR [Concomitant]
     Active Substance: ACLIDINIUM BROMIDE
  3. CELEXA [Concomitant]
     Active Substance: CITALOPRAM HYDROBROMIDE
  4. ALBUTEROL. [Concomitant]
     Active Substance: ALBUTEROL
  5. LUNESTA [Concomitant]
     Active Substance: ESZOPICLONE
  6. TOPROL XL [Concomitant]
     Active Substance: METOPROLOL SUCCINATE
  7. ASPIRIN. [Concomitant]
     Active Substance: ASPIRIN
  8. CADUET [Concomitant]
     Active Substance: AMLODIPINE BESYLATE\ATORVASTATIN CALCIUM
  9. XANAX [Concomitant]
     Active Substance: ALPRAZOLAM
  10. VITAMIN D [Concomitant]
     Active Substance: CHOLECALCIFEROL
  11. IPRATROPIUM [Concomitant]
     Active Substance: IPRATROPIUM
  12. BIOTENE NOS [Concomitant]
     Active Substance: CETYLPYRIDINIUM CHLORIDE OR SODIUM FLUORIDE OR SODIUM MONOFLUOROPHOSPHATE OR GLUCOSE OXIDASE\LACTOFERRIN\LACTOPEROXIDASE BOVINE\LYSOZYME
  13. POTASSIUM [Concomitant]
     Active Substance: POTASSIUM
  14. METOPROLOL SUCCINATE ER [Suspect]
     Active Substance: METOPROLOL SUCCINATE
     Indication: HYPERTENSION
     Dosage: 50 MG 90 PILLS 1 @ IN AM MOUTH
     Route: 048
     Dates: start: 20160325, end: 20160425
  15. LIBRAX [Concomitant]
     Active Substance: CHLORDIAZEPOXIDE HYDROCHLORIDE\CLIDINIUM BROMIDE

REACTIONS (3)
  - Drug ineffective [None]
  - Product substitution issue [None]
  - Cardiac flutter [None]

NARRATIVE: CASE EVENT DATE: 20160327
